FAERS Safety Report 11390530 (Version 1)
Quarter: 2015Q3

REPORT INFORMATION
  Report Type: Spontaneous
  Country: US (occurrence: None)
  Receive Date: 20150813
  Receipt Date: 20150813
  Transmission Date: 20151125
  Serious: Yes (Other)
  Sender: FDA-Public Use
  Company Number: 2015US-101178

PATIENT
  Age: 26 Year
  Sex: Female

DRUGS (1)
  1. ABSORICA [Suspect]
     Active Substance: ISOTRETINOIN
     Indication: PRODUCT USED FOR UNKNOWN INDICATION
     Dates: start: 20150417, end: 20150714

REACTIONS (2)
  - Selective abortion [None]
  - Exposure during pregnancy [None]

NARRATIVE: CASE EVENT DATE: 20150720
